FAERS Safety Report 10583425 (Version 2)
Quarter: 2014Q4

REPORT INFORMATION
  Report Type: Spontaneous
  Country: US (occurrence: None)
  Receive Date: 20141112
  Receipt Date: 20141125
  Transmission Date: 20150529
  Serious: Yes (Disabling)
  Sender: FDA-Public Use
  Company Number: 2014-US-014391

PATIENT
  Sex: Female

DRUGS (2)
  1. XYREM [Suspect]
     Active Substance: SODIUM OXYBATE
     Indication: CATAPLEXY
     Route: 048
     Dates: start: 20140923
  2. XYREM [Suspect]
     Active Substance: SODIUM OXYBATE
     Indication: NARCOLEPSY
     Route: 048
     Dates: start: 20140923

REACTIONS (6)
  - Depressed mood [None]
  - Sleep paralysis [None]
  - Somnolence [None]
  - Fatigue [None]
  - Myalgia [None]
  - Abnormal sleep-related event [None]

NARRATIVE: CASE EVENT DATE: 2014
